FAERS Safety Report 8867685 (Version 1)
Quarter: 2012Q4

REPORT INFORMATION
  Report Type: 
  Country: US (occurrence: US)
  Receive Date: 20121025
  Receipt Date: 20121025
  Transmission Date: 20130627
  Serious: No
  Sender: FDA-Public Use
  Company Number: US-AMGEN-USASP2012017874

PATIENT
  Age: 54 Year
  Sex: Female

DRUGS (13)
  1. ENBREL [Suspect]
     Indication: PRODUCT USED FOR UNKNOWN INDICATION
     Dosage: 50 mg, qwk
     Route: 058
  2. LISINOPRIL [Concomitant]
     Dosage: 2.5 mg, UNK
  3. FLEXERIL                           /00428402/ [Concomitant]
     Dosage: 10 mg, UNK
  4. FOLIC ACID [Concomitant]
     Dosage: 1 mg, UNK
  5. GLIPIZIDE [Concomitant]
     Dosage: 5 mg, UNK
  6. MIRAPEX [Concomitant]
     Dosage: 1.5 mg, UNK
  7. METFORMIN [Concomitant]
     Dosage: 1000 mg, UNK
  8. MELOXICAM [Concomitant]
     Dosage: 15 mg, UNK
  9. METHOTREXATE [Concomitant]
     Dosage: 2.5 mg, UNK
  10. POTASSIUM [Concomitant]
     Dosage: 99 mg, UNK
  11. SIMVASTATIN [Concomitant]
     Dosage: 5 mg, UNK
  12. CALTRATE + D                       /00188401/ [Concomitant]
     Dosage: UNK
  13. FISH OIL [Concomitant]
     Dosage: 100 mg, UNK

REACTIONS (1)
  - Rheumatoid arthritis [Unknown]
